FAERS Safety Report 12448934 (Version 3)
Quarter: 2016Q3

REPORT INFORMATION
  Report Type: Spontaneous
  Country: JP (occurrence: JP)
  Receive Date: 20160608
  Receipt Date: 20160712
  Transmission Date: 20161109
  Serious: Yes (Hospitalization)
  Sender: FDA-Public Use
  Company Number: JP-FRI-1000085085

PATIENT
  Age: 75 Year
  Sex: Male

DRUGS (5)
  1. MEMANTINE. [Suspect]
     Active Substance: MEMANTINE
     Dosage: 20 MG
     Route: 048
     Dates: start: 20160516
  2. TIAPRIDE HYDROCHLORIDE [Suspect]
     Active Substance: TIAPRIDE HYDROCHLORIDE
     Route: 065
  3. MEILAX [Suspect]
     Active Substance: ETHYL LOFLAZEPATE
     Route: 065
  4. MEMANTINE. [Suspect]
     Active Substance: MEMANTINE
     Indication: DEMENTIA ALZHEIMER^S TYPE
     Dosage: DOSE WAS INCREASED PROGRESSIVELY
     Route: 065
     Dates: start: 20160425
  5. RISPERIDONE. [Suspect]
     Active Substance: RISPERIDONE
     Route: 065

REACTIONS (2)
  - Pneumonia aspiration [Recovering/Resolving]
  - Depressed level of consciousness [Recovering/Resolving]
